FAERS Safety Report 15772339 (Version 2)
Quarter: 2019Q1

REPORT INFORMATION
  Report Type: Spontaneous
  Country: GB (occurrence: GB)
  Receive Date: 20181228
  Receipt Date: 20190103
  Transmission Date: 20190417
  Serious: Yes (Other)
  Sender: FDA-Public Use
  Company Number: GB-MYLANLABS-2018M1095894

PATIENT
  Age: 26 Year
  Sex: Male

DRUGS (12)
  1. OLANZAPINE. [Suspect]
     Active Substance: OLANZAPINE
     Indication: SCHIZOPHRENIA
     Route: 065
  2. LAMOTRIGINE. [Suspect]
     Active Substance: LAMOTRIGINE
     Indication: SCHIZOPHRENIA
     Route: 065
  3. CLOZAPINE. [Interacting]
     Active Substance: CLOZAPINE
     Indication: SCHIZOPHRENIA
     Dosage: UNKNOWN INITIAL DOSE
     Route: 065
  4. FLUVOXAMINE [Interacting]
     Active Substance: FLUVOXAMINE
     Indication: SCHIZOPHRENIA
     Dosage: 25 MILLIGRAM, QD
     Route: 065
  5. RISPERIDONE. [Suspect]
     Active Substance: RISPERIDONE
     Indication: SCHIZOPHRENIA
     Route: 065
  6. CLOZAPINE. [Interacting]
     Active Substance: CLOZAPINE
     Dosage: 300 MILLIGRAM, QD
     Route: 065
  7. CLOZAPINE. [Interacting]
     Active Substance: CLOZAPINE
     Dosage: 600MG DAILY (SPLIT DOSE)
  8. ARIPIPRAZOLE. [Suspect]
     Active Substance: ARIPIPRAZOLE
     Indication: SCHIZOPHRENIA
     Dosage: 15 MILLIGRAM, QD
     Route: 065
  9. FLUVOXAMINE [Interacting]
     Active Substance: FLUVOXAMINE
     Dosage: 50 MILLIGRAM, QD
     Route: 065
  10. CLOZAPINE. [Interacting]
     Active Substance: CLOZAPINE
     Dosage: 475 MILLIGRAM, QD
     Route: 065
  11. ARIPIPRAZOLE. [Suspect]
     Active Substance: ARIPIPRAZOLE
     Dosage: 30 MILLIGRAM, QD
     Route: 065
  12. CLOZAPINE. [Interacting]
     Active Substance: CLOZAPINE
     Dosage: DOSE WAS INCREASED IN THE COMMUNITY TO A MAXIMUM OF 900MG DAILY OVER SIX MONTHS
     Route: 065

REACTIONS (7)
  - Drug ineffective [Unknown]
  - Labelled drug-drug interaction medication error [Unknown]
  - Salivary hypersecretion [Recovering/Resolving]
  - Myoclonus [Unknown]
  - Sedation [Recovering/Resolving]
  - Therapeutic response decreased [Unknown]
  - Weight increased [Recovering/Resolving]
